FAERS Safety Report 8603017-6 (Version None)
Quarter: 2012Q3

REPORT INFORMATION
  Report Type: 
  Country: None (occurrence: None)
  Receive Date: 20120817
  Receipt Date: 20120529
  Transmission Date: 20120928
  Serious: No
  Sender: FDA-Public Use
  Company Number: US-GLAXOSMITHKLINE-A0979946A

PATIENT
  Sex: Male

DRUGS (7)
  1. LISINOPRIL [Concomitant]
  2. CHLORTHALIDONE [Concomitant]
  3. CELEXA [Concomitant]
  4. VOTRIENT [Suspect]
     Indication: PRODUCT USED FOR UNKNOWN INDICATION
     Dosage: 600MG PER DAY
     Route: 048
  5. OMEPRAZOLE [Concomitant]
  6. AMLODIPINE [Concomitant]
  7. LEVOTHYROXINE SODIUM [Concomitant]

REACTIONS (4)
  - HAIR COLOUR CHANGES [None]
  - DIARRHOEA [None]
  - VOMITING [None]
  - LOWER RESPIRATORY TRACT INFECTION [None]
